FAERS Safety Report 6662552-0 (Version None)
Quarter: 2010Q1

REPORT INFORMATION
  Report Type: 
  Country: None (occurrence: None)
  Receive Date: 20100329
  Receipt Date: 20100322
  Transmission Date: 20100710
  Serious: Yes (Hospitalization)
  Sender: FDA-Public Use
  Company Number: 2009SP031231

PATIENT
  Age: 62 Year
  Sex: Male

DRUGS (6)
  1. BLINDED SCH 503034 [Suspect]
     Indication: HEPATITIS C
     Dosage: 4 DF;TID
     Dates: start: 20090605
  2. REBETOL [Suspect]
     Indication: HEPATITIS C
     Dosage: 4 DF;QD
     Dates: start: 20090511
  3. PEGASYS [Suspect]
     Indication: HEPATITIS C
     Dosage: 180 MCG;QW
     Dates: start: 20090511
  4. MCP [Concomitant]
  5. MULTIBIONTA [Concomitant]
  6. EPOGEN [Concomitant]

REACTIONS (4)
  - ANAEMIA [None]
  - BRONCHITIS [None]
  - DIARRHOEA [None]
  - LEUKOPENIA [None]
